FAERS Safety Report 11393372 (Version 1)
Quarter: 2015Q3

REPORT INFORMATION
  Report Type: Spontaneous
  Country: AU (occurrence: AU)
  Receive Date: 20150818
  Receipt Date: 20150818
  Transmission Date: 20151125
  Serious: Yes (Death)
  Sender: FDA-Public Use
  Company Number: PHHY2015AU096797

PATIENT
  Age: 15 Year
  Sex: Male

DRUGS (2)
  1. VANCOMYCIN [Suspect]
     Active Substance: VANCOMYCIN
     Indication: BACTERAEMIA
     Route: 042
  2. VANCOMYCIN [Suspect]
     Active Substance: VANCOMYCIN
     Indication: SEPSIS
     Route: 065

REACTIONS (10)
  - Drug reaction with eosinophilia and systemic symptoms [Fatal]
  - Renal failure [Fatal]
  - Lymphocytic infiltration [Fatal]
  - Eosinophilia [Fatal]
  - Rash erythematous [Fatal]
  - Acute hepatic failure [Fatal]
  - Lymphocytosis [Fatal]
  - Pyrexia [Fatal]
  - Hypotension [Fatal]
  - Hepatic necrosis [Fatal]
